FAERS Safety Report 8524344-7 (Version None)
Quarter: 2012Q3

REPORT INFORMATION
  Report Type: 
  Country: None (occurrence: None)
  Receive Date: 20120720
  Receipt Date: 20120713
  Transmission Date: 20120928
  Serious: Yes (Other)
  Sender: FDA-Public Use
  Company Number: US-PFIZER INC-2012153931

PATIENT
  Sex: Female
  Weight: 54.2 kg

DRUGS (6)
  1. NERATINIB [Suspect]
     Dosage: 200 MG, 1X/DAY (C1D8)
     Route: 048
     Dates: start: 20120615, end: 20120620
  2. NERATINIB [Suspect]
     Indication: BREAST CANCER METASTATIC
     Dosage: C1D1
     Route: 048
     Dates: start: 20120608, end: 20120608
  3. TRASTUZUMAB [Suspect]
     Dosage: 4 MG/KG, (200/100 MG) CYCLIC ON DAY 1, 8, 15 AND 24 (C1D8)
     Route: 042
     Dates: start: 20120615, end: 20120615
  4. PACLITAXEL [Suspect]
     Indication: BREAST CANCER METASTATIC
     Dosage: C1D1
     Route: 042
     Dates: start: 20120608, end: 20120608
  5. PACLITAXEL [Suspect]
     Dosage: 120 MG, CYCLIC ON DAY 1 ,8 AND 15 (C1D8)
     Route: 042
     Dates: start: 20120615, end: 20120615
  6. TRASTUZUMAB [Suspect]
     Indication: BREAST CANCER METASTATIC
     Dosage: C1D1
     Route: 042
     Dates: start: 20120608, end: 20120608

REACTIONS (3)
  - HYPOKALAEMIA [None]
  - DEHYDRATION [None]
  - MUCOSAL INFLAMMATION [None]
